FAERS Safety Report 4270182-3 (Version None)
Quarter: 2004Q1

REPORT INFORMATION
  Report Type: 
  Country: None (occurrence: None)
  Receive Date: 20040112
  Receipt Date: 20040105
  Transmission Date: 20041129
  Serious: Yes (Other)
  Sender: FDA-Public Use
  Company Number: HQWYE121806JAN04

PATIENT
  Sex: Male

DRUGS (1)
  1. EFFEXOR XR [Suspect]
     Indication: DEPRESSION
     Dosage: 150 MG 1X PER 1 DAY, ORAL
     Route: 048

REACTIONS (5)
  - DRUG EXPOSURE VIA BREAST MILK [None]
  - DYSKINESIA NEONATAL [None]
  - MATERNAL DRUGS AFFECTING FOETUS [None]
  - MYOCLONUS [None]
  - NEONATAL RESPIRATORY DISTRESS SYNDROME [None]
